FAERS Safety Report 4370878-9 (Version None)
Quarter: 2004Q2

REPORT INFORMATION
  Report Type: 
  Country: None (occurrence: None)
  Receive Date: 20040603
  Receipt Date: 20040603
  Transmission Date: 20050107
  Serious: No
  Sender: FDA-Public Use
  Company Number: None

PATIENT
  Sex: Female

DRUGS (3)
  1. LAMICTAL [Suspect]
     Indication: BIPOLAR DISORDER
     Dosage: ONE TID
     Dates: start: 20040326
  2. DEPAKOTE [Concomitant]
  3. PAXIL [Concomitant]

REACTIONS (5)
  - LYMPHADENOPATHY [None]
  - MALAISE [None]
  - OEDEMA PERIPHERAL [None]
  - PYREXIA [None]
  - RASH PUSTULAR [None]
